FAERS Safety Report 5956718-2 (Version None)
Quarter: 2008Q4

REPORT INFORMATION
  Report Type: 
  Country: None (occurrence: None)
  Receive Date: 20081118
  Receipt Date: 20081104
  Transmission Date: 20090506
  Serious: Yes (Hospitalization, Other)
  Sender: FDA-Public Use
  Company Number: US-ELI_LILLY_AND_COMPANY-US200809003989

PATIENT
  Sex: Male
  Weight: 83.9 kg

DRUGS (8)
  1. FORTEO [Suspect]
     Dosage: 20 UG, DAILY (1/D)
     Route: 058
     Dates: start: 20070101
  2. FLOMAX [Concomitant]
  3. PLAVIX [Concomitant]
  4. CHLORPHENIRAMINE MALEATE AND PSEUDOEPHEDRINE HCL [Concomitant]
  5. CELEBREX [Concomitant]
  6. TEGRETOL [Concomitant]
  7. LIPITOR [Concomitant]
  8. FLUNISOLIDE [Concomitant]

REACTIONS (2)
  - ANGINA PECTORIS [None]
  - ARTERIAL OCCLUSIVE DISEASE [None]
